FAERS Safety Report 18490793 (Version 3)
Quarter: 2021Q1

REPORT INFORMATION
  Report Type: Spontaneous
  Country: JP (occurrence: JP)
  Receive Date: 20201111
  Receipt Date: 20210213
  Transmission Date: 20210419
  Serious: Yes (Death, Life-Threatening, Hospitalization, Other)
  Sender: FDA-Public Use
  Company Number: JP-009507513-2010JPN002393J

PATIENT
  Age: 68 Year
  Sex: Male
  Weight: 34 kg

DRUGS (9)
  1. RIVASTACH [Concomitant]
     Active Substance: RIVASTIGMINE
     Indication: DEMENTIA
     Dosage: 18 MILLIGRAM, QD
  2. SHIOMARIN [Concomitant]
     Active Substance: LATAMOXEF DISODIUM
     Indication: PNEUMONIA
     Dosage: UNK
     Route: 041
     Dates: end: 20201010
  3. ZERBAXA [Suspect]
     Active Substance: CEFTOLOZANE SULFATE\TAZOBACTAM SODIUM
     Indication: PNEUMONIA
     Dosage: 3 GRAM, TID
     Route: 041
     Dates: start: 20201012, end: 20201020
  4. PARKISTON [Concomitant]
     Active Substance: CARBIDOPA\LEVODOPA
     Indication: PARKINSONISM
     Dosage: 100 MILLIGRAM, BID
     Route: 048
  5. MAGMITT [Concomitant]
     Active Substance: MAGNESIUM OXIDE
     Indication: CONSTIPATION
     Dosage: 330 MILLIGRAM, TID
     Route: 048
  6. AMBROXOL HYDROCHLORIDE [Concomitant]
     Active Substance: AMBROXOL HYDROCHLORIDE
     Indication: PRODUCTIVE COUGH
     Dosage: 15 MILLIGRAM, TID
     Route: 048
  7. LANSOPRAZOLE. [Concomitant]
     Active Substance: LANSOPRAZOLE
     Indication: GASTRIC ULCER
     Dosage: 30 MILLIGRAM, QD
     Route: 048
  8. DALACIN?S [Concomitant]
     Active Substance: CLINDAMYCIN
     Indication: PNEUMONIA
     Dosage: UNK
     Route: 041
     Dates: end: 20201010
  9. SODIUM CHLORIDE. [Concomitant]
     Active Substance: SODIUM CHLORIDE
     Indication: ELECTROLYTE SUBSTITUTION THERAPY
     Dosage: 1 GRAM, TID
     Route: 048

REACTIONS (6)
  - Ventricular tachycardia [Fatal]
  - Ventricular fibrillation [Fatal]
  - Congestive hepatopathy [Not Recovered/Not Resolved]
  - Hepatic function abnormal [Recovered/Resolved]
  - Haemoglobin decreased [Not Recovered/Not Resolved]
  - Circulatory collapse [Not Recovered/Not Resolved]

NARRATIVE: CASE EVENT DATE: 20201020
